FAERS Safety Report 18278728 (Version 1)
Quarter: 2020Q3

REPORT INFORMATION
  Report Type: Spontaneous
  Country: US (occurrence: US)
  Receive Date: 20200917
  Receipt Date: 20200917
  Transmission Date: 20201103
  Serious: No
  Sender: FDA-Public Use
  Company Number: US-GLAXOSMITHKLINE-US2020181329

PATIENT
  Sex: Female

DRUGS (3)
  1. ALLI [Suspect]
     Active Substance: ORLISTAT
     Indication: GASTROINTESTINAL DISORDER
     Dosage: 3 DF, QD
  2. ALLI [Suspect]
     Active Substance: ORLISTAT
     Indication: CONSTIPATION
  3. XENICAL [Suspect]
     Active Substance: ORLISTAT
     Indication: PRODUCT USED FOR UNKNOWN INDICATION
     Dosage: UNK

REACTIONS (6)
  - Product use in unapproved indication [Unknown]
  - Drug effective for unapproved indication [Unknown]
  - Pain [Unknown]
  - Drug intolerance [Unknown]
  - Dyspepsia [Unknown]
  - Treatment noncompliance [Unknown]
